FAERS Safety Report 10934915 (Version 1)
Quarter: 2015Q1

REPORT INFORMATION
  Report Type: Spontaneous
  Country: US (occurrence: US)
  Receive Date: 20150320
  Receipt Date: 20150320
  Transmission Date: 20150721
  Serious: No
  Sender: FDA-Public Use
  Company Number: US-ASTRAZENECA-2011SE75842

PATIENT
  Age: 71 Year
  Sex: Female

DRUGS (2)
  1. CREAM [Concomitant]
     Active Substance: UNSPECIFIED INGREDIENT
  2. CRESTOR [Suspect]
     Active Substance: ROSUVASTATIN CALCIUM
     Route: 048

REACTIONS (4)
  - Ligament sprain [Unknown]
  - Restless legs syndrome [Unknown]
  - Paraesthesia [Unknown]
  - Insomnia [Unknown]
